FAERS Safety Report 9360709 (Version 1)
Quarter: 2013Q2

REPORT INFORMATION
  Report Type: Spontaneous
  Country: US (occurrence: None)
  Receive Date: 20130620
  Receipt Date: 20130620
  Transmission Date: 20140414
  Serious: Yes (Life-Threatening, Hospitalization, Disabling, Other)
  Sender: FDA-Public Use
  Company Number: None

PATIENT
  Age: 60 Year
  Sex: Female
  Weight: 58.97 kg

DRUGS (1)
  1. ABILIFY [Suspect]
     Indication: DEPRESSED MOOD
     Dates: start: 20120101, end: 20130602

REACTIONS (5)
  - Nephrolithiasis [None]
  - Sepsis [None]
  - Mechanical ventilation [None]
  - Blood pressure abnormal [None]
  - Haemorrhage intracranial [None]
